FAERS Safety Report 4758581-4 (Version None)
Quarter: 2005Q3

REPORT INFORMATION
  Report Type: 
  Country: None (occurrence: None)
  Receive Date: 20050901
  Receipt Date: 20050822
  Transmission Date: 20060218
  Serious: Yes (Hospitalization)
  Sender: FDA-Public Use
  Company Number: US-JNJFOC-20050805208

PATIENT
  Age: 71 Year
  Sex: Female
  Weight: 79.38 kg

DRUGS (4)
  1. DURAGESIC-100 [Suspect]
     Route: 062
     Dates: start: 20041201
  2. DURAGESIC-100 [Suspect]
     Route: 062
     Dates: start: 20041201
  3. ULTRAM [Concomitant]
     Indication: PAIN
  4. LIDODERM [Concomitant]

REACTIONS (3)
  - APPLICATION SITE PRURITUS [None]
  - PNEUMONIA [None]
  - THERAPEUTIC RESPONSE DECREASED [None]
